FAERS Safety Report 13348769 (Version 1)
Quarter: 2017Q1

REPORT INFORMATION
  Report Type: Report from Study
  Country: US (occurrence: US)
  Receive Date: 20170320
  Receipt Date: 20170320
  Transmission Date: 20170428
  Serious: Yes (Death, Other)
  Sender: FDA-Public Use
  Company Number: US-ROCHE-1907752

PATIENT
  Age: 54 Year
  Sex: Male

DRUGS (6)
  1. MYCOPHENOLATE MOFETIL. [Suspect]
     Active Substance: MYCOPHENOLATE MOFETIL
     Indication: PROPHYLAXIS AGAINST TRANSPLANT REJECTION
     Route: 065
  2. PREDNISOLONE. [Suspect]
     Active Substance: PREDNISOLONE
     Indication: PROPHYLAXIS AGAINST TRANSPLANT REJECTION
     Route: 065
  3. DACLIZUMAB [Suspect]
     Active Substance: DACLIZUMAB
     Indication: PROPHYLAXIS AGAINST TRANSPLANT REJECTION
     Route: 065
  4. GANCICLOVIR. [Suspect]
     Active Substance: GANCICLOVIR
     Indication: ANTIVIRAL PROPHYLAXIS
     Route: 042
  5. TACROLIMUS. [Suspect]
     Active Substance: TACROLIMUS
     Indication: PROPHYLAXIS AGAINST TRANSPLANT REJECTION
     Route: 065
  6. GANCICLOVIR. [Suspect]
     Active Substance: GANCICLOVIR
     Indication: ANTIVIRAL PROPHYLAXIS
     Route: 048

REACTIONS (10)
  - Organising pneumonia [Unknown]
  - Drug resistance [Unknown]
  - Pneumonia bacterial [Fatal]
  - Aspergillus infection [Unknown]
  - Bronchopulmonary aspergillosis [Fatal]
  - Obliterative bronchiolitis [Unknown]
  - Pneumonia viral [Unknown]
  - Cytomegalovirus test positive [Fatal]
  - Myelodysplastic syndrome [Fatal]
  - Cytomegalovirus infection [Unknown]
